FAERS Safety Report 5743482-5 (Version None)
Quarter: 2008Q2

REPORT INFORMATION
  Report Type: 
  Country: None (occurrence: None)
  Receive Date: 20080520
  Receipt Date: 20080508
  Transmission Date: 20081010
  Serious: Yes (Hospitalization, Other)
  Sender: FDA-Public Use
  Company Number: NL-JNJFOC-20080502084

PATIENT
  Sex: Male
  Weight: 83.5 kg

DRUGS (5)
  1. INFLIXIMAB, RECOMBINANT [Suspect]
     Indication: RHEUMATOID ARTHRITIS
     Route: 042
  2. METHOTREXATE [Suspect]
     Indication: RHEUMATOID ARTHRITIS
  3. FOLIC ACID [Concomitant]
  4. CALCIUM D3 [Concomitant]
     Indication: OSTEOPENIA
  5. ARTHROTEC [Concomitant]
     Indication: PAIN

REACTIONS (1)
  - PROSTATE CANCER [None]
